FAERS Safety Report 7688562-2 (Version None)
Quarter: 2011Q3

REPORT INFORMATION
  Report Type: 
  Country: None (occurrence: None)
  Receive Date: 20110817
  Receipt Date: 20110817
  Transmission Date: 20111222
  Serious: Yes (Other)
  Sender: FDA-Public Use
  Company Number: None

PATIENT
  Age: 63 Year
  Sex: Female
  Weight: 65.317 kg

DRUGS (1)
  1. SIMVASTATIN [Suspect]
     Indication: BLOOD CHOLESTEROL
     Dosage: 2 TABLETS AT BEDTIME
     Route: 048
     Dates: start: 20101223, end: 20110601

REACTIONS (4)
  - PALPITATIONS [None]
  - VERTIGO [None]
  - GAIT DISTURBANCE [None]
  - PAIN [None]
